FAERS Safety Report 8093915-7 (Version None)
Quarter: 2012Q1

REPORT INFORMATION
  Report Type: 
  Country: None (occurrence: None)
  Receive Date: 20120125
  Receipt Date: 20120116
  Transmission Date: 20120608
  Serious: Yes (Death)
  Sender: FDA-Public Use
  Company Number: 2012POI057500043

PATIENT
  Age: 52 Year
  Sex: Female

DRUGS (9)
  1. AMITRIPTYLINE HCL [Suspect]
     Dosage: PER ORAL
     Route: 048
     Dates: end: 20100101
  2. GEMFIBROZIL [Suspect]
     Dosage: PER ORAL
     Route: 048
  3. AMPHETAMINES [Suspect]
     Dosage: PER ORAL
     Route: 048
     Dates: end: 20100101
  4. METOCLOPRAMIDE [Suspect]
     Dosage: PER ORAL
     Route: 048
     Dates: end: 20100101
  5. ETHANOL [Suspect]
     Dosage: PER ORAL
     Route: 048
     Dates: end: 20100101
  6. ORAMORPH SR [Suspect]
     Dosage: PER ORAL
     Route: 048
     Dates: end: 20100101
  7. GABAPENTIN [Suspect]
     Dosage: PER ORAL
     Route: 048
     Dates: end: 20100101
  8. CYCLOBENZAPRINE [Suspect]
     Dosage: PER ORAL
     Route: 048
     Dates: end: 20100101
  9. PROPRANOLOL [Suspect]
     Dosage: PER ORAL
     Route: 048
     Dates: end: 20100101

REACTIONS (3)
  - RESPIRATORY ARREST [None]
  - CARDIAC ARREST [None]
  - COMPLETED SUICIDE [None]
